FAERS Safety Report 5265602-1 (Version None)
Quarter: 2007Q1

REPORT INFORMATION
  Report Type: 
  Country: None (occurrence: None)
  Receive Date: 20061213
  Receipt Date: 20021029
  Transmission Date: 20070707
  Serious: No
  Sender: FDA-Public Use
  Company Number: 2002UW14744

PATIENT
  Sex: Female

DRUGS (8)
  1. TAMOXIFEN CITRATE [Suspect]
     Indication: BREAST CANCER
     Dosage: 20 MG DAILY PO
     Route: 048
     Dates: start: 20010619, end: 20011201
  2. PRINIVIL [Concomitant]
  3. ASPIRIN [Concomitant]
  4. ZOCOR [Concomitant]
  5. XANAX [Concomitant]
  6. DOXEPIN HCL [Concomitant]
  7. HYDROCHLOROTHIAZIDE [Concomitant]
  8. VITAMIN E [Concomitant]

REACTIONS (2)
  - UTERINE CANCER [None]
  - VAGINAL HAEMORRHAGE [None]
